FAERS Safety Report 25230334 (Version 1)
Quarter: 2025Q2

REPORT INFORMATION
  Report Type: Spontaneous
  Country: US (occurrence: US)
  Receive Date: 20250423
  Receipt Date: 20250423
  Transmission Date: 20250717
  Serious: Yes (Death, Other)
  Sender: AMGEN
  Company Number: US-AMGEN-USASP2025075583

PATIENT
  Age: 55 Year
  Sex: Male

DRUGS (11)
  1. PREDNISONE [Suspect]
     Active Substance: PREDNISONE
     Indication: Prostate cancer metastatic
     Route: 065
  2. TRASTUZUMAB [Suspect]
     Active Substance: TRASTUZUMAB
     Indication: Prostate cancer metastatic
     Route: 065
  3. LEUPROLIDE [Concomitant]
     Active Substance: LEUPROLIDE
  4. BICALUTAMIDE [Concomitant]
     Active Substance: BICALUTAMIDE
  5. SIPULEUCEL-T [Concomitant]
     Active Substance: SIPULEUCEL-T
  6. DOCETAXEL [Concomitant]
     Active Substance: DOCETAXEL
  7. ENZALUTAMIDE [Concomitant]
     Active Substance: ENZALUTAMIDE
  8. ABIRATERONE ACETATE [Concomitant]
     Active Substance: ABIRATERONE ACETATE
  9. CABAZITAXEL [Concomitant]
     Active Substance: CABAZITAXEL
  10. CARBOPLATIN [Concomitant]
     Active Substance: CARBOPLATIN
  11. PACLITAXEL [Concomitant]
     Active Substance: PACLITAXEL

REACTIONS (6)
  - Death [Fatal]
  - Metastases to liver [Unknown]
  - Metastatic lymphoma [Unknown]
  - Metastases to bone [Unknown]
  - Metastases to lung [Unknown]
  - Off label use [Unknown]
